FAERS Safety Report 9645440 (Version 3)
Quarter: 2013Q4

REPORT INFORMATION
  Report Type: Spontaneous
  Country: SG (occurrence: None)
  Receive Date: 20131023
  Receipt Date: 20131127
  Transmission Date: 20140711
  Serious: Yes (Hospitalization, Other)
  Sender: FDA-Public Use
  Company Number: SYM-2013-11947

PATIENT
  Age: 69 Year
  Sex: Male

DRUGS (17)
  1. 5 FU [Suspect]
     Indication: COLORECTAL CANCER METASTATIC
     Route: 040
     Dates: start: 20130306, end: 20130306
  2. BLINDED THERAPY [Suspect]
     Indication: COLORECTAL CANCER METASTATIC
     Route: 042
     Dates: start: 20130306, end: 20130306
  3. IRINOTECAN (IRINOTECAN) (SOLUTION FOR INFUSION) (IRINOTECAN) [Suspect]
     Indication: COLORECTAL CANCER METASTATIC
     Route: 042
     Dates: start: 20130306, end: 20130306
  4. LEUCOVORIN (FOLINIC ACID) (SOLUTION FOR INFUSION) (FOLINIC ACID) [Suspect]
     Indication: COLORECTAL CANCER METASTATIC
     Route: 042
     Dates: start: 20130306, end: 20130306
  5. ATENOLOL (ATENOLOL) (ATENOLOL) [Concomitant]
  6. ASPIRIN (ACETYALSALICYLIC ACID) (ACETYLSALICYLIC ACID) [Concomitant]
  7. PROCODIN (PROMETHAZINE W/CODEINE /01129901/) (CODEINE PHOSPHATE, PROMETHAZINE HYDROCHLORIDE) [Concomitant]
  8. KETOPROPHEN (KETOPROPHEN) (KETOPROPHEN) [Concomitant]
  9. ACETYLCYSTEINE (ACETYLCYSTEINE) (ACETYLCYSTEINE) [Concomitant]
  10. HYDROCORTISONE (HYDROCORTISONE) (HYDROCORTISONE) [Concomitant]
  11. FLUIMUCIL (ACETYLCYSTEINE) (ACETYLCYSTEINE) [Concomitant]
  12. CIPROFLOXACIN (CIPROFLOXACIN) (CIPROFLOXACIN) [Concomitant]
  13. OMEPRAZOLE (OMEPRAZOLE) (OMEPRAZOLE) [Concomitant]
  14. ATROPINE (ATROPINE) (ATROPINE) [Concomitant]
  15. ONDANSETRON (ONDANSETRON) (ONDANSETRON) [Concomitant]
  16. DEXAMETHASONE (DEXAMETHASONE) (DEXAMETHASONE) [Concomitant]
  17. METOCLOPRAMIDE (METOCLOPRAMIDE) (METOCLOPRAMIDE) [Concomitant]

REACTIONS (5)
  - Pneumothorax [None]
  - Pneumothorax [None]
  - Tuberculosis [None]
  - Emphysema [None]
  - Subcutaneous emphysema [None]
